FAERS Safety Report 7475265-2 (Version None)
Quarter: 2011Q2

REPORT INFORMATION
  Report Type: 
  Country: None (occurrence: None)
  Receive Date: 20110509
  Receipt Date: 20110509
  Transmission Date: 20111010
  Serious: Yes (Other)
  Sender: FDA-Public Use
  Company Number: None

PATIENT
  Age: 43 Year
  Sex: Male
  Weight: 53.978 kg

DRUGS (2)
  1. TAMSULOSIN HCL [Suspect]
     Indication: URINARY RETENTION
     Dosage: 0.4 MG DAILY ORAL
     Route: 048
     Dates: start: 20110117, end: 20110121
  2. TAMSULOSIN HCL [Suspect]
     Indication: PELVIC FLOOR DYSSYNERGIA
     Dosage: 0.4 MG DAILY ORAL
     Route: 048
     Dates: start: 20110117, end: 20110121

REACTIONS (3)
  - ALANINE AMINOTRANSFERASE INCREASED [None]
  - ASPARTATE AMINOTRANSFERASE INCREASED [None]
  - BLOOD ALKALINE PHOSPHATASE INCREASED [None]
